FAERS Safety Report 7466837-X (Version None)
Quarter: 2011Q2

REPORT INFORMATION
  Report Type: 
  Country: None (occurrence: None)
  Receive Date: 20110509
  Receipt Date: 20110203
  Transmission Date: 20111010
  Serious: No
  Sender: FDA-Public Use
  Company Number: US-SANOFI-AVENTIS-2011SA008512

PATIENT
  Age: 60 Year
  Sex: Male

DRUGS (4)
  1. APIDRA [Suspect]
     Dosage: DOSAGE: 12-20 UNITS
     Route: 058
     Dates: start: 20090101
  2. LANTUS [Suspect]
     Dosage: DOSE:75 UNIT(S)
     Route: 058
     Dates: start: 20090101
  3. SOLOSTAR [Suspect]
     Dates: start: 20090101
  4. SOLOSTAR [Suspect]
     Dates: start: 20090101

REACTIONS (6)
  - HYPERGLYCAEMIA [None]
  - DEHYDRATION [None]
  - DECREASED APPETITE [None]
  - EXPIRED DRUG ADMINISTERED [None]
  - GLYCOSYLATED HAEMOGLOBIN INCREASED [None]
  - BLOOD GLUCOSE INCREASED [None]
